FAERS Safety Report 11631262 (Version 1)
Quarter: 2015Q4

REPORT INFORMATION
  Report Type: Spontaneous
  Country: US (occurrence: US)
  Receive Date: 20151014
  Receipt Date: 20151014
  Transmission Date: 20160304
  Serious: Yes (Other)
  Sender: FDA-Public Use
  Company Number: US-TEVA-600459USA

PATIENT
  Sex: Female
  Weight: 81.72 kg

DRUGS (2)
  1. BENICAR [Concomitant]
     Active Substance: OLMESARTAN MEDOXOMIL
  2. AZILECT [Suspect]
     Active Substance: RASAGILINE MESYLATE
     Route: 065

REACTIONS (2)
  - Breast cancer [Unknown]
  - Drug dispensing error [Unknown]
